FAERS Safety Report 5797087-0 (Version None)
Quarter: 2008Q3

REPORT INFORMATION
  Report Type: 
  Country: None (occurrence: None)
  Receive Date: 20080701
  Receipt Date: 20080623
  Transmission Date: 20090109
  Serious: Yes (Hospitalization)
  Sender: FDA-Public Use
  Company Number: US-WATSON-2008-03794

PATIENT
  Sex: Female

DRUGS (4)
  1. FIORINAL 50/325/40 (WATSON LABORATORIES) [Suspect]
     Indication: TENSION HEADACHE
     Dosage: AS REQUIRED; THERAPY DATES:  30 YEARS
     Route: 048
     Dates: start: 19780101
  2. IMITREX [Suspect]
     Indication: MIGRAINE
     Dosage: 100 MG, PRN; THERAPY DATES: 10 YEARS
     Route: 048
     Dates: start: 19980101
  3. METOCLOPRAMIDE HYDROCHLORIDE [Suspect]
     Indication: NAUSEA
     Dosage: INFUSION
     Route: 042
     Dates: start: 20080606
  4. ANTIHYPERTENSIVES [Concomitant]
     Indication: BLOOD PRESSURE
     Dosage: UNK
     Route: 065

REACTIONS (3)
  - HEADACHE [None]
  - HEART RATE IRREGULAR [None]
  - NAUSEA [None]
